FAERS Safety Report 7041211-9 (Version None)
Quarter: 2010Q4

REPORT INFORMATION
  Report Type: 
  Country: None (occurrence: None)
  Receive Date: 20101013
  Receipt Date: 20101005
  Transmission Date: 20110411
  Serious: Yes (Hospitalization)
  Sender: FDA-Public Use
  Company Number: JP-BRISTOL-MYERS SQUIBB COMPANY-15299183

PATIENT
  Age: 74 Year
  Sex: Male
  Weight: 63 kg

DRUGS (4)
  1. ABILIFY [Suspect]
     Indication: SCHIZOPHRENIA
     Dosage: 19DEC08:17DEC09(24MG),18DEC09:27MAY2010(18MG),28:30MAY10(24MG),31MAY:4JUN10(30MG),5:7JUN10(18MG)
     Route: 048
     Dates: start: 20081219, end: 20100608
  2. HYPADIL [Concomitant]
     Dosage: EYE DROPS
     Route: 031
     Dates: start: 20100318
  3. KARY UNI [Concomitant]
     Dosage: EYE DROPS
     Route: 031
     Dates: start: 20100318
  4. ALINAMIN-F [Concomitant]
     Dosage: TABS
     Dates: start: 20081219, end: 20090409

REACTIONS (3)
  - DEHYDRATION [None]
  - NEUROLEPTIC MALIGNANT SYNDROME [None]
  - URINARY TRACT INFECTION [None]
